FAERS Safety Report 4498109-X (Version None)
Quarter: 2004Q4

REPORT INFORMATION
  Report Type: 
  Country: None (occurrence: None)
  Receive Date: 20040927
  Receipt Date: 20040608
  Transmission Date: 20050328
  Serious: No
  Sender: FDA-Public Use
  Company Number: USA040669598

PATIENT
  Age: 15 Year
  Sex: Male
  Weight: 91 kg

DRUGS (2)
  1. STRATTERA [Suspect]
     Indication: ATTENTION DEFICIT/HYPERACTIVITY DISORDER
     Dosage: 60 MG IN THE MORNING
     Dates: start: 20031101
  2. ADDERALL [Concomitant]

REACTIONS (6)
  - ABNORMAL SLEEP-RELATED EVENT [None]
  - BLOOD PRESSURE INCREASED [None]
  - DEPRESSION [None]
  - EDUCATIONAL PROBLEM [None]
  - FATIGUE [None]
  - HEART RATE INCREASED [None]
